FAERS Safety Report 7205049-1 (Version None)
Quarter: 2010Q4

REPORT INFORMATION
  Report Type: 
  Country: None (occurrence: None)
  Receive Date: 20101230
  Receipt Date: 20101222
  Transmission Date: 20110411
  Serious: Yes (Other)
  Sender: FDA-Public Use
  Company Number: US-AMGEN-USASP2010010875

PATIENT

DRUGS (1)
  1. ENBREL [Suspect]
     Indication: PSORIASIS
     Dosage: 50 MG, 2 TIMES/WK
     Dates: start: 20101019

REACTIONS (6)
  - DARK CIRCLES UNDER EYES [None]
  - ERYTHEMA [None]
  - NAUSEA [None]
  - PALLOR [None]
  - SKIN WARM [None]
  - SWELLING FACE [None]
